FAERS Safety Report 15297241 (Version 1)
Quarter: 2018Q3

REPORT INFORMATION
  Report Type: Spontaneous
  Country: CN (occurrence: CN)
  Receive Date: 20180820
  Receipt Date: 20180820
  Transmission Date: 20181010
  Serious: Yes (Other)
  Sender: FDA-Public Use
  Company Number: CN-ALLERGAN-1840346US

PATIENT
  Age: 7 Month
  Sex: Female
  Weight: 9 kg

DRUGS (5)
  1. URSODEOXYCHOLIC ACID UNK [Suspect]
     Active Substance: URSODIOL
     Indication: NEONATAL CHOLESTASIS
     Route: 065
  2. GANCICLOVIR. [Concomitant]
     Active Substance: GANCICLOVIR
     Indication: CYTOMEGALOVIRUS INFECTION
  3. CEFTRIAXONE. [Concomitant]
     Active Substance: CEFTRIAXONE
     Indication: PNEUMONIA
  4. CEFOPERAZONE [Concomitant]
     Active Substance: CEFOPERAZONE
     Indication: PNEUMONIA
  5. CEFTIZOXIME [Concomitant]
     Active Substance: CEFTIZOXIME
     Indication: PNEUMONIA

REACTIONS (3)
  - Condition aggravated [Unknown]
  - Hepatic failure [Recovered/Resolved]
  - Off label use [Unknown]
